FAERS Safety Report 14207675 (Version 1)
Quarter: 2017Q4

REPORT INFORMATION
  Report Type: Spontaneous
  Country: US (occurrence: None)
  Receive Date: 20171120
  Receipt Date: 20171120
  Transmission Date: 20180321
  Serious: Yes (Hospitalization)
  Sender: FDA-Public Use
  Company Number: None

PATIENT
  Age: 77 Year
  Sex: Male

DRUGS (40)
  1. FUROSEMIDE. [Concomitant]
     Active Substance: FUROSEMIDE
  2. GABAPENTIN. [Concomitant]
     Active Substance: GABAPENTIN
  3. SUCRALFATE. [Concomitant]
     Active Substance: SUCRALFATE
  4. ATOVAQUONE. [Concomitant]
     Active Substance: ATOVAQUONE
  5. ONE TOUCH [Concomitant]
  6. PROGRAF [Concomitant]
     Active Substance: TACROLIMUS\TACROLIMUS ANHYDROUS
  7. INSULIN [Concomitant]
     Active Substance: INSULIN NOS
  8. NATEGLINIDE. [Concomitant]
     Active Substance: NATEGLINIDE
  9. ASPIRIN. [Concomitant]
     Active Substance: ASPIRIN
  10. BD PEN NEEDL [Concomitant]
  11. BISAC-EVAC [Concomitant]
     Active Substance: BISACODYL
  12. LANTUS [Concomitant]
     Active Substance: INSULIN GLARGINE
  13. NOVOLIN N [Concomitant]
     Active Substance: INSULIN HUMAN
  14. OMEPRAZOLE. [Concomitant]
     Active Substance: OMEPRAZOLE
  15. SODIUM BICAR [Concomitant]
  16. AMOXIK CLAV [Concomitant]
  17. NOVOLOG [Concomitant]
     Active Substance: INSULIN ASPART
  18. ONDANSETRON [Concomitant]
     Active Substance: ONDANSETRON
  19. PREDNISONE. [Concomitant]
     Active Substance: PREDNISONE
  20. TIMOLOL MAL [Concomitant]
  21. VITAMIN C [Concomitant]
     Active Substance: ASCORBIC ACID
  22. CARAFATE [Concomitant]
     Active Substance: SUCRALFATE
  23. DOXAZOSIN [Concomitant]
     Active Substance: DOXAZOSIN\DOXAZOSIN MESYLATE
  24. FINASTERIDE. [Concomitant]
     Active Substance: FINASTERIDE
  25. METOCLOPRAM [Concomitant]
     Active Substance: METOCLOPRAMIDE
  26. VITAMIN D3 [Concomitant]
     Active Substance: CHOLECALCIFEROL
  27. ACCU-CHEK [Concomitant]
  28. AZITHROMYCIN ANHYDROUS. [Concomitant]
     Active Substance: AZITHROMYCIN ANHYDROUS
  29. FEROSUL [Concomitant]
  30. HYDRALAZINE [Concomitant]
     Active Substance: HYDRALAZINE HYDROCHLORIDE
  31. LANSOPRAZOLE. [Concomitant]
     Active Substance: LANSOPRAZOLE
  32. LATANOPROST. [Concomitant]
     Active Substance: LATANOPROST
  33. LISINOPRIL. [Concomitant]
     Active Substance: LISINOPRIL
  34. PILOCARPINE. [Concomitant]
     Active Substance: PILOCARPINE
  35. TACROLIMUS. [Concomitant]
     Active Substance: TACROLIMUS
  36. TACROLIMUS. [Suspect]
     Active Substance: TACROLIMUS
     Indication: RENAL TRANSPLANT
     Dosage: 6ML  Q12H  J TUBE
     Dates: start: 20171026
  37. AMLODIPINE [Concomitant]
     Active Substance: AMLODIPINE BESYLATE
  38. AMOXICILLIN. [Concomitant]
     Active Substance: AMOXICILLIN
  39. FASTCLIX [Concomitant]
  40. SMZ/TMP [Concomitant]
     Active Substance: SULFAMETHOXAZOLE\TRIMETHOPRIM

REACTIONS (1)
  - Renal disorder [None]

NARRATIVE: CASE EVENT DATE: 201710
